FAERS Safety Report 10035829 (Version 1)
Quarter: 2014Q1

REPORT INFORMATION
  Report Type: Spontaneous
  Country: US (occurrence: None)
  Receive Date: 20140306
  Receipt Date: 20140306
  Transmission Date: 20141002
  Serious: Yes (Hospitalization, Disabling)
  Sender: FDA-Public Use
  Company Number: 163-21880-12113732

PATIENT
  Age: 68 Year
  Sex: Male

DRUGS (14)
  1. REVLIMID [Suspect]
     Indication: CHRONIC LYMPHOCYTIC LEUKAEMIA
     Dosage: 21 IN 28 D
     Route: 048
     Dates: start: 20121001, end: 20121119
  2. DIFLUCAN (FLUCONAZOLE) [Concomitant]
  3. KEFLEX (CEFALEXIN MONOHYDRATE) [Concomitant]
  4. ZOFRAN (ONDANSETRON HYDROCHLORIDE) [Concomitant]
  5. AMBIEN (ZOLPIDEM TARTRATE) [Concomitant]
  6. DOXYCYCLINE HYCLATE (DOXYCYCLINE HYCLATE) [Concomitant]
  7. VITAMIN D3 (COLECALCIFEROL) [Concomitant]
  8. ALLOPURINOL (ALLOPURINOL) [Concomitant]
  9. CIPRO (CIPROFLOXACIN) [Concomitant]
  10. VANCOMYCIN (VANCOMYCIN) [Concomitant]
  11. LEVAQUIN (LEVOFLOXACIN) [Concomitant]
  12. BACITRACIN (BACITRACIN) [Concomitant]
  13. RITUXAN (RITUXIMAB) [Concomitant]
  14. MEDROL (METHYLPREDNISOLONE) [Concomitant]

REACTIONS (2)
  - Rash pruritic [None]
  - Pyrexia [None]
